FAERS Safety Report 10540080 (Version 1)
Quarter: 2014Q4

REPORT INFORMATION
  Report Type: Spontaneous
  Country: US (occurrence: None)
  Receive Date: 20141023
  Receipt Date: 20141023
  Transmission Date: 20150529
  Serious: Yes (Hospitalization)
  Sender: FDA-Public Use
  Company Number: None

PATIENT
  Age: 55 Year
  Sex: Male
  Weight: 55.7 kg

DRUGS (19)
  1. LANSOPRAZOLE. [Concomitant]
     Active Substance: LANSOPRAZOLE
  2. ACETAMINOPHEN SOLN [Concomitant]
  3. DORZOLAMIDE 2% OPTH SOLN,OPH [Concomitant]
  4. ERYTHROMYCIN OINT,OPH [Concomitant]
  5. LATANOPROST SOLN,OPH [Concomitant]
  6. ALBUTEROL 0.083% SOLN,INHL [Concomitant]
  7. METOCLOPRAMIDE SOLN [Concomitant]
  8. SULFAMETHOXAZOLE/TRIMETHOPRIM [Concomitant]
     Active Substance: SULFAMETHOXAZOLE\TRIMETHOPRIM
  9. FINASTERIDE. [Concomitant]
     Active Substance: FINASTERIDE
  10. PANCRELIPASE. [Concomitant]
     Active Substance: PANCRELIPASE
  11. ALBUTEROL/IPRATROPIUM SOLN,INHL [Concomitant]
  12. PSYLLIUM POWDER [Concomitant]
  13. OXYCODONE [Concomitant]
     Active Substance: OXYCODONE
  14. CHOLECALCIFEROL [Concomitant]
     Active Substance: CHOLECALCIFEROL
  15. KETOCONAZOLE SHAMPOO 2% SHAMPOO [Concomitant]
  16. SULFAMETHOXAZOLE/TRIMETHOPRIM [Suspect]
     Active Substance: SULFAMETHOXAZOLE\TRIMETHOPRIM
     Dates: start: 20140918, end: 20140925
  17. BISACODYL SUPP,RTL [Concomitant]
  18. ONDANSETRON [Concomitant]
     Active Substance: ONDANSETRON
  19. TERAZOSIN [Concomitant]
     Active Substance: TERAZOSIN\TERAZOSIN HYDROCHLORIDE

REACTIONS (3)
  - Vomiting [None]
  - Nausea [None]
  - Liver function test abnormal [None]

NARRATIVE: CASE EVENT DATE: 20140925
